FAERS Safety Report 8130230-7 (Version None)
Quarter: 2012Q1

REPORT INFORMATION
  Report Type: 
  Country: None (occurrence: None)
  Receive Date: 20120210
  Receipt Date: 20120203
  Transmission Date: 20120608
  Serious: Yes (Hospitalization, Other)
  Sender: FDA-Public Use
  Company Number: PHHY2011CH73729

PATIENT
  Sex: Female
  Weight: 60 kg

DRUGS (2)
  1. GILENYA [Suspect]
     Indication: RELAPSING-REMITTING MULTIPLE SCLEROSIS
     Dosage: 0.5 MG, UNK
     Route: 048
     Dates: start: 20110817, end: 20110817
  2. REBIF [Suspect]
     Indication: RELAPSING-REMITTING MULTIPLE SCLEROSIS
     Dosage: 44 UG 3 TIMES PER WEK
     Dates: start: 20060101

REACTIONS (8)
  - MOTOR DYSFUNCTION [None]
  - MONOPARESIS [None]
  - HYPERTENSION [None]
  - CARDIAC FAILURE [None]
  - ATRIOVENTRICULAR BLOCK COMPLETE [None]
  - HYPOTENSION [None]
  - BRADYCARDIA [None]
  - GAIT DISTURBANCE [None]
